FAERS Safety Report 7183664-1 (Version None)
Quarter: 2010Q4

REPORT INFORMATION
  Report Type: 
  Country: None (occurrence: None)
  Receive Date: 20101222
  Receipt Date: 20101217
  Transmission Date: 20110411
  Serious: Yes (Hospitalization)
  Sender: FDA-Public Use
  Company Number: FR-KINGPHARMUSA00001-K201001517

PATIENT
  Age: 55 Year
  Sex: Male

DRUGS (6)
  1. ALTACE [Suspect]
     Indication: HYPERTENSION
     Dosage: 2.5 MG, QD
     Route: 048
     Dates: start: 20101207, end: 20101214
  2. DOXAZOSIN [Concomitant]
  3. DELORAZEPAM [Concomitant]
  4. AMLODIPINE [Concomitant]
  5. LAMOTRIGINE [Concomitant]
  6. TEGRETOL [Concomitant]

REACTIONS (5)
  - ARTHRALGIA [None]
  - BURNING SENSATION [None]
  - ERYTHEMA [None]
  - MYALGIA [None]
  - PRURITUS [None]
